FAERS Safety Report 14385923 (Version 3)
Quarter: 2021Q1

REPORT INFORMATION
  Report Type: Spontaneous
  Country: US (occurrence: US)
  Receive Date: 20180115
  Receipt Date: 20210113
  Transmission Date: 20210419
  Serious: No
  Sender: FDA-Public Use
  Company Number: US-VANDA PHARMACEUTICALS, INC-2017TASUS001814

PATIENT
  Sex: Male

DRUGS (1)
  1. HETLIOZ [Suspect]
     Active Substance: TASIMELTEON
     Indication: BLINDNESS
     Dosage: 20 MG, EVERY 24 HOURS, 1 HOUR BEFORE BEDTIME
     Route: 048
     Dates: start: 201601

REACTIONS (2)
  - Drug ineffective [Unknown]
  - Weight decreased [Unknown]
